FAERS Safety Report 9482226 (Version 5)
Quarter: 2013Q4

REPORT INFORMATION
  Report Type: Spontaneous
  Country: US (occurrence: US)
  Receive Date: 20130828
  Receipt Date: 20131217
  Transmission Date: 20140711
  Serious: Yes (Other)
  Sender: FDA-Public Use
  Company Number: US-JNJFOC-20130810426

PATIENT
  Age: 45 Year
  Sex: Male
  Weight: 77.11 kg

DRUGS (5)
  1. STELARA [Suspect]
     Indication: PSORIASIS
     Route: 058
     Dates: start: 20100623
  2. GABAPENTIN [Suspect]
     Indication: PRODUCT USED FOR UNKNOWN INDICATION
     Route: 065
  3. FISH OIL [Concomitant]
     Indication: BLOOD CHOLESTEROL INCREASED
     Route: 065
     Dates: start: 20110822
  4. DOXYCYCLINE [Concomitant]
     Indication: ROSEOLA
     Route: 065
     Dates: start: 201101
  5. METRONIDAZOLE [Concomitant]
     Indication: PRODUCT USED FOR UNKNOWN INDICATION
     Route: 065
     Dates: start: 201101

REACTIONS (2)
  - Basal cell carcinoma [Recovered/Resolved]
  - Juvenile melanoma benign [Recovered/Resolved]
